FAERS Safety Report 8379455-6 (Version None)
Quarter: 2012Q2

REPORT INFORMATION
  Report Type: 
  Country: None (occurrence: None)
  Receive Date: 20120523
  Receipt Date: 20120514
  Transmission Date: 20120825
  Serious: No
  Sender: FDA-Public Use
  Company Number: US-PFIZER INC-2012112761

PATIENT
  Sex: Female
  Weight: 59 kg

DRUGS (5)
  1. GABAPENTIN [Suspect]
     Dosage: 300 MG, UNK
     Dates: start: 20120101
  2. GABAPENTIN [Suspect]
     Dosage: 300 MG, 2X/DAY
     Dates: start: 20120101
  3. GABAPENTIN [Suspect]
     Dosage: 300 MG, 3X/DAY
     Dates: start: 20120101, end: 20120101
  4. LEVOTHROID [Concomitant]
     Indication: THYROID DISORDER
     Dosage: 75 UG, DAILY
     Route: 048
  5. GABAPENTIN [Suspect]
     Indication: CONVULSION
     Dosage: 300 MG, 2X/DAY
     Dates: start: 20120301, end: 20120101

REACTIONS (7)
  - PARAESTHESIA [None]
  - FEELING ABNORMAL [None]
  - DRY MOUTH [None]
  - POOR QUALITY SLEEP [None]
  - FATIGUE [None]
  - LIGAMENT SPRAIN [None]
  - MUSCLE TWITCHING [None]
